FAERS Safety Report 6623997-8 (Version None)
Quarter: 2010Q1

REPORT INFORMATION
  Report Type: 
  Country: None (occurrence: None)
  Receive Date: 20100304
  Receipt Date: 20100216
  Transmission Date: 20100710
  Serious: Yes (Death, Hospitalization, Other)
  Sender: FDA-Public Use
  Company Number: 2010BI001463

PATIENT
  Age: 51 Year
  Sex: Female

DRUGS (6)
  1. ZEVALIN [Suspect]
     Indication: NON-HODGKIN'S LYMPHOMA
  2. ZEVALIN [Suspect]
     Indication: STEM CELL TRANSPLANT
  3. RITUXIMAB [Concomitant]
  4. CYCLOSPORINE [Concomitant]
  5. FLUDARABINE PHOSPHATE [Concomitant]
  6. TACROLIMUS [Concomitant]

REACTIONS (8)
  - CHRONIC GRAFT VERSUS HOST DISEASE [None]
  - COMA [None]
  - CONVULSION [None]
  - HYPOPHAGIA [None]
  - LUNG INFILTRATION [None]
  - MULTI-ORGAN FAILURE [None]
  - PANCYTOPENIA [None]
  - RENAL FAILURE ACUTE [None]
